FAERS Safety Report 12667728 (Version 3)
Quarter: 2017Q1

REPORT INFORMATION
  Report Type: Report from Study
  Country: CA (occurrence: CA)
  Receive Date: 20160819
  Receipt Date: 20170320
  Transmission Date: 20170428
  Serious: Yes (Hospitalization)
  Sender: FDA-Public Use
  Company Number: CA-HLSUS-2016-CA-000379

PATIENT
  Age: 31 Year
  Sex: Male

DRUGS (2)
  1. LUVOX [Concomitant]
     Active Substance: FLUVOXAMINE MALEATE
     Dates: end: 201609
  2. CLOZARIL [Suspect]
     Active Substance: CLOZAPINE
     Indication: SCHIZOPHRENIA
     Route: 048
     Dates: start: 20050921

REACTIONS (2)
  - Pyrexia [Recovered/Resolved]
  - Lymphoma [Unknown]

NARRATIVE: CASE EVENT DATE: 2015
